FAERS Safety Report 16111738 (Version 1)
Quarter: 2019Q1

REPORT INFORMATION
  Report Type: Spontaneous
  Country: US (occurrence: US)
  Receive Date: 20190221
  Receipt Date: 20190221
  Transmission Date: 20190418
  Serious: No
  Sender: FDA-Public Use
  Company Number: None

PATIENT
  Age: 60 Year
  Sex: Female

DRUGS (2)
  1. TYKERB [Suspect]
     Active Substance: LAPATINIB DITOSYLATE
     Dates: start: 201511
  2. XELODA [Concomitant]
     Active Substance: CAPECITABINE

REACTIONS (2)
  - Biliary tract disorder [None]
  - Cholecystectomy [None]

NARRATIVE: CASE EVENT DATE: 20190221
